FAERS Safety Report 9857511 (Version 1)
Quarter: 2014Q1

REPORT INFORMATION
  Report Type: Spontaneous
  Country: NL (occurrence: NL)
  Receive Date: 20140131
  Receipt Date: 20140131
  Transmission Date: 20141002
  Serious: Yes (Hospitalization)
  Sender: FDA-Public Use
  Company Number: PHHY2014NL010151

PATIENT
  Age: 49 Year
  Sex: Male

DRUGS (2)
  1. CLOZAPINE [Suspect]
     Indication: SCHIZOPHRENIA
  2. CIPROFLOXACIN [Interacting]

REACTIONS (3)
  - Toxicity to various agents [Unknown]
  - Drug level increased [Recovered/Resolved]
  - Drug interaction [Unknown]
